FAERS Safety Report 18261426 (Version 2)
Quarter: 2020Q4

REPORT INFORMATION
  Report Type: Spontaneous
  Country: US (occurrence: US)
  Receive Date: 20200914
  Receipt Date: 20201022
  Transmission Date: 20210113
  Serious: No
  Sender: FDA-Public Use
  Company Number: US-ASTRAZENECA-2020SF10281

PATIENT
  Age: 829 Month
  Sex: Male
  Weight: 74.8 kg

DRUGS (7)
  1. LISINOPRIL. [Concomitant]
     Active Substance: LISINOPRIL
     Dosage: EVERY DAY
     Route: 048
     Dates: start: 2003
  2. CLARITIN [Concomitant]
     Active Substance: LORATADINE
     Dosage: EVERY DAY
     Route: 065
  3. POTASSIUM CITRATE. [Concomitant]
     Active Substance: POTASSIUM CITRATE
     Route: 048
     Dates: start: 2019
  4. SYMBICORT [Suspect]
     Active Substance: BUDESONIDE\FORMOTEROL FUMARATE DIHYDRATE
     Indication: CHRONIC OBSTRUCTIVE PULMONARY DISEASE
     Dosage: 160/4.5 MCG, TWO INHALATIONS
     Route: 055
     Dates: start: 2019
  5. ALLOPURINOL. [Concomitant]
     Active Substance: ALLOPURINOL
     Route: 048
     Dates: start: 2019
  6. PRIMATENE MIST [Concomitant]
     Active Substance: EPINEPHRINE
     Route: 065
  7. SUDAFED [Concomitant]
     Active Substance: PSEUDOEPHEDRINE HYDROCHLORIDE
     Route: 065

REACTIONS (5)
  - Drug delivery system issue [Unknown]
  - Weight decreased [Unknown]
  - Device malfunction [Unknown]
  - Intentional product misuse [Unknown]
  - Intentional device misuse [Unknown]

NARRATIVE: CASE EVENT DATE: 202007
